FAERS Safety Report 9171028 (Version 2)
Quarter: 2013Q2

REPORT INFORMATION
  Report Type: Spontaneous
  Country: JP (occurrence: JP)
  Receive Date: 20130319
  Receipt Date: 20130401
  Transmission Date: 20140414
  Serious: Yes (Congenital Anomaly, Other)
  Sender: FDA-Public Use
  Company Number: JP-BRISTOL-MYERS SQUIBB COMPANY-17482621

PATIENT
  Age: 1 Day
  Sex: Male
  Weight: 2.9 kg

DRUGS (1)
  1. ABILIFY TABS [Suspect]
     Dosage: ON 25FEB11:12MG/D?11MAR11:INCREASED 18MG/D?UNK-JUN12:?REG1:6MG ON 07AUG12-24JAN13:171DAYS
     Route: 064
     Dates: start: 20110225, end: 20130124

REACTIONS (1)
  - Ventricular septal defect [Not Recovered/Not Resolved]
